FAERS Safety Report 6691446-X (Version None)
Quarter: 2010Q2

REPORT INFORMATION
  Report Type: 
  Country: None (occurrence: None)
  Receive Date: 20100416
  Receipt Date: 20100407
  Transmission Date: 20101027
  Serious: Yes (Other)
  Sender: FDA-Public Use
  Company Number: 2010SP020454

PATIENT
  Sex: Male

DRUGS (1)
  1. POSACONAZOLE [Suspect]
     Indication: PROPHYLAXIS

REACTIONS (2)
  - BRONCHOPULMONARY ASPERGILLOSIS [None]
  - NEUTROPENIA [None]
